FAERS Safety Report 5934322-X (Version None)
Quarter: 2008Q4

REPORT INFORMATION
  Report Type: 
  Country: None (occurrence: None)
  Receive Date: 20081029
  Receipt Date: 20081020
  Transmission Date: 20090506
  Serious: Yes (Other)
  Sender: FDA-Public Use
  Company Number: PHHY2008JP17135

PATIENT
  Age: 71 Year
  Sex: Female

DRUGS (3)
  1. LOCHOL [Suspect]
     Dosage: 20 MG/DAY
     Route: 048
     Dates: start: 20080401
  2. ACTOS [Concomitant]
     Dosage: 15 MG
     Route: 048
  3. AMARYL [Concomitant]
     Dosage: 1 MG
     Route: 048

REACTIONS (2)
  - ACTIVITIES OF DAILY LIVING IMPAIRED [None]
  - WEIGHT INCREASED [None]
